FAERS Safety Report 18429441 (Version 2)
Quarter: 2020Q4

REPORT INFORMATION
  Report Type: Report from Study
  Country: AT (occurrence: AT)
  Receive Date: 20201026
  Receipt Date: 20201113
  Transmission Date: 20210114
  Serious: Yes (Hospitalization, Other)
  Sender: FDA-Public Use
  Company Number: AT-PFIZER INC-2019506688

PATIENT
  Age: 74 Year
  Sex: Male
  Weight: 87 kg

DRUGS (2)
  1. LORLATINIB [Suspect]
     Active Substance: LORLATINIB
     Indication: NON-SMALL CELL LUNG CANCER
     Dosage: 100 MG, 1X/DAY SOBERLY 7A.M.
     Dates: start: 20190115
  2. SIMVASTATIN. [Concomitant]
     Active Substance: SIMVASTATIN
     Dosage: 40 MG, 1X/DAY (0-0-1) STARTED ALREADY BEFORE LORLATINIB

REACTIONS (7)
  - Diarrhoea haemorrhagic [Unknown]
  - Dizziness [Recovering/Resolving]
  - Pleural effusion [Unknown]
  - Cardiac failure [Unknown]
  - Tinnitus [Recovering/Resolving]
  - Oedema peripheral [Unknown]
  - Hypercholesterolaemia [Unknown]

NARRATIVE: CASE EVENT DATE: 20190119
